FAERS Safety Report 7248998-0 (Version None)
Quarter: 2011Q1

REPORT INFORMATION
  Report Type: 
  Country: None (occurrence: None)
  Receive Date: 20110128
  Receipt Date: 20110125
  Transmission Date: 20110831
  Serious: Yes (Life-Threatening, Hospitalization, Other)
  Sender: FDA-Public Use
  Company Number: PHHY2010AT55978

PATIENT
  Age: 63 Year
  Sex: Female

DRUGS (12)
  1. TEMESTA [Concomitant]
     Dosage: 2.5 MG, QD
  2. LEPONEX [Suspect]
     Dosage: 150 MG, QD
     Dates: start: 20100708, end: 20100711
  3. LEPONEX [Suspect]
     Dosage: 200 MG, QD
     Dates: start: 20100712, end: 20100715
  4. AKINETON [Concomitant]
     Dosage: 6 MG, QD
  5. LEPONEX [Suspect]
     Indication: SCHIZOAFFECTIVE DISORDER
     Dosage: 250 MG, QD
     Dates: start: 20100707, end: 20100805
  6. LEPONEX [Suspect]
     Dosage: 50 MG, QD
  7. LEPONEX [Suspect]
     Dosage: 250 MG, QD
     Dates: start: 20100717, end: 20100804
  8. DOMINAL [Concomitant]
     Dosage: 80 MG, QD
  9. ZELDOX [Concomitant]
  10. ENALAPRIL [Concomitant]
     Dosage: 5 MG, QD
  11. CONCOR [Concomitant]
     Dosage: 2.5 MG, QD
  12. ZOLPIDEM TARTRATE [Concomitant]

REACTIONS (6)
  - WHITE BLOOD CELL COUNT DECREASED [None]
  - AGRANULOCYTOSIS [None]
  - BASOPHIL COUNT DECREASED [None]
  - EOSINOPHIL COUNT DECREASED [None]
  - NEUTROPHIL COUNT DECREASED [None]
  - HYPOCHROMASIA [None]
